FAERS Safety Report 4366033-9 (Version None)
Quarter: 2004Q2

REPORT INFORMATION
  Report Type: 
  Country: None (occurrence: None)
  Receive Date: 20040524
  Receipt Date: 20040510
  Transmission Date: 20050107
  Serious: Yes (Other)
  Sender: FDA-Public Use
  Company Number: 8014

PATIENT
  Age: 3 Month
  Sex: Male
  Weight: 6.5 kg

DRUGS (4)
  1. PAMIDRONATE DISODIUM [Suspect]
     Indication: HYPERCALCAEMIA
  2. FUROSEMIDE [Concomitant]
  3. PREDNISOLONE [Concomitant]
  4. POTASSIUM [Concomitant]

REACTIONS (9)
  - ANOREXIA [None]
  - BLOOD CALCIUM INCREASED [None]
  - CONSTIPATION [None]
  - DRUG TOXICITY [None]
  - EXTRASYSTOLES [None]
  - HYPERHIDROSIS [None]
  - OSTEOSCLEROSIS [None]
  - RESTLESSNESS [None]
  - VOMITING [None]
